FAERS Safety Report 7399243-7 (Version None)
Quarter: 2011Q2

REPORT INFORMATION
  Report Type: 
  Country: None (occurrence: None)
  Receive Date: 20110407
  Receipt Date: 20110404
  Transmission Date: 20111010
  Serious: Yes (Other)
  Sender: FDA-Public Use
  Company Number: US-PFIZER INC-2011075045

PATIENT
  Sex: Female

DRUGS (1)
  1. CHANTIX [Suspect]
     Dosage: UNK
     Dates: start: 20090201

REACTIONS (6)
  - EMOTIONAL DISTRESS [None]
  - SUICIDAL IDEATION [None]
  - DEPRESSION [None]
  - ABNORMAL BEHAVIOUR [None]
  - HALLUCINATION [None]
  - ANXIETY [None]
